FAERS Safety Report 21304705 (Version 1)
Quarter: 2022Q3

REPORT INFORMATION
  Report Type: Spontaneous
  Country: CA (occurrence: CA)
  Receive Date: 20220907
  Receipt Date: 20220907
  Transmission Date: 20221027
  Serious: Yes (Death)
  Sender: FDA-Public Use
  Company Number: CA-PFIZER INC-PV202200059210

PATIENT
  Age: 88 Year
  Sex: Female

DRUGS (13)
  1. REVATIO [Suspect]
     Active Substance: SILDENAFIL CITRATE
     Indication: Pulmonary hypertension
     Dosage: 20 MG
     Route: 048
     Dates: start: 20220728
  2. MIRTAZAPINE [Concomitant]
     Active Substance: MIRTAZAPINE
  3. DILTIAZEM [Concomitant]
     Active Substance: DILTIAZEM
  4. EZETIMIBE [Concomitant]
     Active Substance: EZETIMIBE
  5. MINERALS\VITAMINS [Concomitant]
     Active Substance: MINERALS\VITAMINS
  6. ROSUVASTATIN [Concomitant]
     Active Substance: ROSUVASTATIN
  7. RABEPRAZOLE [Concomitant]
     Active Substance: RABEPRAZOLE
  8. BISOPROLOL [Concomitant]
     Active Substance: BISOPROLOL
  9. LEVOTHYROXINE [Concomitant]
     Active Substance: LEVOTHYROXINE
  10. FUROSEMIDE [Concomitant]
     Active Substance: FUROSEMIDE
  11. ASPIRIN [Concomitant]
     Active Substance: ASPIRIN
  12. VITAMIN D3 [Concomitant]
     Active Substance: CHOLECALCIFEROL
  13. POTASSIUM [Concomitant]
     Active Substance: POTASSIUM

REACTIONS (1)
  - Death [Fatal]
